FAERS Safety Report 6641816-0 (Version None)
Quarter: 2010Q1

REPORT INFORMATION
  Report Type: 
  Country: None (occurrence: None)
  Receive Date: 20100316
  Receipt Date: 20100308
  Transmission Date: 20100710
  Serious: Yes (Death, Hospitalization)
  Sender: FDA-Public Use
  Company Number: TPA2010A00893

PATIENT
  Age: 77 Year
  Sex: Female
  Weight: 59.4212 kg

DRUGS (20)
  1. PIOGLITAZONE HCL [Suspect]
     Indication: CARDIOVASCULAR EVENT PROPHYLAXIS
     Dosage: 15 MG, PER ORAL
     Route: 048
     Dates: start: 20070117, end: 20070126
  2. AGGRENOX [Concomitant]
  3. LASIX [Concomitant]
  4. NEXIUM [Concomitant]
  5. PRAVASTATIN [Concomitant]
  6. RIFAMPIN (RIFAMPICIN) [Concomitant]
  7. LASIX [Concomitant]
  8. PROTONIX (ALL OTHER THERAPEUTIC PRODUCTS) [Concomitant]
  9. OXACILLIN [Concomitant]
  10. METRONIDAZOLE [Concomitant]
  11. SPIRIVA (ALL OTHER THERAPEUTIC PRODUCTS) [Concomitant]
  12. SOTALOL HCL [Concomitant]
  13. PERCOCET [Concomitant]
  14. ZOLPIDEM [Concomitant]
  15. POTASSIUM (POTASSIUM) [Concomitant]
  16. FLORASTOR (ALL OTHER THERAPEUTIC PRODUCTS) [Concomitant]
  17. LIDOCAINE [Concomitant]
  18. VITAMIN B12 [Concomitant]
  19. VITAMIN D [Concomitant]
  20. ASCORBIC ACID [Concomitant]

REACTIONS (14)
  - AORTIC STENOSIS [None]
  - CARDIAC FAILURE [None]
  - CARDIAC FAILURE CONGESTIVE [None]
  - CARDIAC MURMUR [None]
  - CONDITION AGGRAVATED [None]
  - ENDOCARDITIS BACTERIAL [None]
  - JUGULAR VEIN DISTENSION [None]
  - MITRAL VALVE INCOMPETENCE [None]
  - MUSCULOSKELETAL PAIN [None]
  - PLEURAL EFFUSION [None]
  - PNEUMONIA [None]
  - PULMONARY HYPERTENSION [None]
  - RESPIRATORY FAILURE [None]
  - TRICUSPID VALVE INCOMPETENCE [None]
